FAERS Safety Report 25788576 (Version 1)
Quarter: 2025Q3

REPORT INFORMATION
  Report Type: Report from Study
  Country: US (occurrence: US)
  Receive Date: 20250910
  Receipt Date: 20250910
  Transmission Date: 20251020
  Serious: Yes (Hospitalization, Other)
  Sender: ALEXION PHARMACEUTICALS
  Company Number: US-AstraZeneca-CH-00946192A

PATIENT
  Sex: Female

DRUGS (1)
  1. OSIMERTINIB [Suspect]
     Active Substance: OSIMERTINIB

REACTIONS (7)
  - Mental impairment [Unknown]
  - Gait disturbance [Unknown]
  - Dyspnoea [Unknown]
  - Nail disorder [Unknown]
  - Onychoclasis [Unknown]
  - Muscle spasms [Unknown]
  - Joint swelling [Unknown]
